FAERS Safety Report 25998620 (Version 1)
Quarter: 2025Q4

REPORT INFORMATION
  Report Type: Spontaneous
  Country: US (occurrence: US)
  Receive Date: 20251105
  Receipt Date: 20251105
  Transmission Date: 20260117
  Serious: No
  Sender: GLENMARK
  Company Number: US-GLENMARK PHARMACEUTICALS-2025GMK099827

PATIENT

DRUGS (2)
  1. ESTRADIOL [Suspect]
     Active Substance: ESTRADIOL
     Indication: Product used for unknown indication
     Dosage: 1 DOSAGE FORM (INITIALLY TAKING THE PRODUCT THREE TIMES PER WEEK BEFORE REDUCING TO TWICE WEEKLY)
     Route: 067
  2. ESTRADIOL [Suspect]
     Active Substance: ESTRADIOL
     Dosage: 1 DOSAGE FORM (ONE TABLET TWICE WEEKLY)
     Route: 067

REACTIONS (2)
  - Feeling hot [Unknown]
  - Inappropriate schedule of product administration [Unknown]
